APPROVED DRUG PRODUCT: GRISACTIN ULTRA
Active Ingredient: GRISEOFULVIN, ULTRAMICROCRYSTALLINE
Strength: 165MG
Dosage Form/Route: TABLET;ORAL
Application: A062438 | Product #001
Applicant: WYETH AYERST LABORATORIES
Approved: Nov 17, 1983 | RLD: No | RS: No | Type: DISCN